FAERS Safety Report 21024451 (Version 1)
Quarter: 2022Q2

REPORT INFORMATION
  Report Type: Spontaneous
  Country: US (occurrence: US)
  Receive Date: 20220629
  Receipt Date: 20220629
  Transmission Date: 20220720
  Serious: Yes (Other)
  Sender: FDA-Public Use
  Company Number: US-PURDUE-USA-2022-0294804

PATIENT
  Sex: Male

DRUGS (2)
  1. DILAUDID [Interacting]
     Active Substance: HYDROMORPHONE HYDROCHLORIDE
     Indication: Pain
     Dosage: UNK
     Route: 048
  2. CORTISONE ACETATE [Interacting]
     Active Substance: CORTISONE ACETATE
     Indication: Pain
     Dosage: UNK
     Route: 065

REACTIONS (11)
  - Demyelination [Unknown]
  - Enterococcal infection [Unknown]
  - Exostosis [Unknown]
  - Fall [Unknown]
  - Central nervous system lesion [Unknown]
  - Change of bowel habit [Unknown]
  - Cognitive disorder [Unknown]
  - Depressed mood [Unknown]
  - Dermatitis [Unknown]
  - Fracture [Unknown]
  - Drug interaction [Unknown]
